FAERS Safety Report 23529316 (Version 1)
Quarter: 2024Q1

REPORT INFORMATION
  Report Type: Spontaneous
  Country: US (occurrence: US)
  Receive Date: 20240216
  Receipt Date: 20240216
  Transmission Date: 20240409
  Serious: Yes (Death, Other)
  Sender: FDA-Public Use
  Company Number: US-NOVITIUMPHARMA-2024USNVP00127

PATIENT
  Age: 81 Year
  Sex: Female

DRUGS (6)
  1. PREDNISONE [Suspect]
     Active Substance: PREDNISONE
     Indication: B-cell type acute leukaemia
  2. VINCRISTINE [Concomitant]
     Active Substance: VINCRISTINE
     Indication: B-cell type acute leukaemia
  3. METHOTREXATE [Concomitant]
     Active Substance: METHOTREXATE
     Indication: B-cell type acute leukaemia
  4. MERCAPTOPURINE [Concomitant]
     Active Substance: MERCAPTOPURINE
     Indication: B-cell type acute leukaemia
  5. CYCLOPHOSPHAMIDE [Concomitant]
     Active Substance: CYCLOPHOSPHAMIDE
     Indication: B-cell type acute leukaemia
  6. DOXORUBICIN [Concomitant]
     Active Substance: DOXORUBICIN
     Indication: B-cell type acute leukaemia

REACTIONS (1)
  - Myelodysplastic syndrome [Fatal]
